FAERS Safety Report 6368575-3 (Version None)
Quarter: 2009Q3

REPORT INFORMATION
  Report Type: 
  Country: None (occurrence: None)
  Receive Date: 20090922
  Receipt Date: 20090312
  Transmission Date: 20100115
  Serious: No
  Sender: FDA-Public Use
  Company Number: US-BRISTOL-MYERS SQUIBB COMPANY-14541171

PATIENT
  Age: 51 Year
  Sex: Female
  Weight: 66 kg

DRUGS (1)
  1. BUSPAR [Suspect]
     Indication: ANXIETY
     Dosage: STARTED IN 1989 AND DISCON'D AFTER 1 MONTH;RESTARTED 8 YEARS AGO AND AGAIN DISCON'D AFTER 2 YEARS.
     Dates: start: 19890101

REACTIONS (1)
  - NIGHTMARE [None]
